FAERS Safety Report 21965958 (Version 2)
Quarter: 2023Q1

REPORT INFORMATION
  Report Type: Other
  Country: US (occurrence: None)
  Receive Date: 20230208
  Receipt Date: 20230322
  Transmission Date: 20230418
  Serious: Yes (Other)
  Sender: FDA-Public Use
  Company Number: US-ROCHE-3277044

PATIENT
  Age: 54 Year
  Sex: Female
  Weight: 88.984 kg

DRUGS (20)
  1. OCREVUS [Suspect]
     Active Substance: OCRELIZUMAB
     Indication: Primary progressive multiple sclerosis
     Dosage: LAST DATE OF TREATMENT 12/15/2021
     Route: 042
     Dates: start: 20211215
  2. TYLENOL [Concomitant]
     Active Substance: ACETAMINOPHEN
  3. GABAPENTIN [Concomitant]
     Active Substance: GABAPENTIN
  4. CALCIUM MAGNESIUM ZINC VITAMIN D3 [Concomitant]
  5. TOPIRAMATE [Concomitant]
     Active Substance: TOPIRAMATE
  6. ACETAMINOPHEN [Concomitant]
     Active Substance: ACETAMINOPHEN
  7. KETOROLAC [Concomitant]
     Active Substance: KETOROLAC TROMETHAMINE
  8. VALACYCLOVIR [Concomitant]
     Active Substance: VALACYCLOVIR HYDROCHLORIDE
  9. ESTRADIOL [Concomitant]
     Active Substance: ESTRADIOL
  10. LEVOTHYROXINE [Concomitant]
     Active Substance: LEVOTHYROXINE
  11. RELISTOR [Concomitant]
     Active Substance: METHYLNALTREXONE BROMIDE
  12. XIIDRA [Concomitant]
     Active Substance: LIFITEGRAST
  13. MUPIROCIN [Concomitant]
     Active Substance: MUPIROCIN
  14. TIZANIDINE [Concomitant]
     Active Substance: TIZANIDINE
  15. BACLOFEN [Concomitant]
     Active Substance: BACLOFEN
  16. DIPHENHYDRAMINE [Concomitant]
     Active Substance: DIPHENHYDRAMINE
  17. ALBUTEROL [Concomitant]
     Active Substance: ALBUTEROL
  18. HYDROMORPHONE [Concomitant]
     Active Substance: HYDROMORPHONE
  19. HYDROXYZINE [Concomitant]
     Active Substance: HYDROXYZINE HYDROCHLORIDE
  20. PANTOPRAZOLE [Concomitant]
     Active Substance: PANTOPRAZOLE

REACTIONS (4)
  - Cystitis [Recovered/Resolved]
  - COVID-19 [Recovered/Resolved]
  - Gastroenteritis viral [Not Recovered/Not Resolved]
  - Throat irritation [Not Recovered/Not Resolved]

NARRATIVE: CASE EVENT DATE: 20221218
